FAERS Safety Report 9802737 (Version 1)
Quarter: 2014Q1

REPORT INFORMATION
  Report Type: Spontaneous
  Country: IL (occurrence: IL)
  Receive Date: 20140108
  Receipt Date: 20140108
  Transmission Date: 20141002
  Serious: Yes (Death)
  Sender: FDA-Public Use
  Company Number: IL-IPSEN BIOPHARMACEUTICALS, INC.-2014-0044

PATIENT
  Age: 74 Year
  Sex: Male

DRUGS (1)
  1. SOMATULINE AUTOGEL 60MG [Suspect]
     Indication: PRODUCT USED FOR UNKNOWN INDICATION
     Dosage: 60 MG
     Route: 058
     Dates: start: 20041219

REACTIONS (1)
  - Death [Fatal]
